FAERS Safety Report 9338250 (Version 1)
Quarter: 2013Q2

REPORT INFORMATION
  Report Type: Spontaneous
  Country: ES (occurrence: ES)
  Receive Date: 20130610
  Receipt Date: 20130610
  Transmission Date: 20140414
  Serious: Yes (Hospitalization)
  Sender: FDA-Public Use
  Company Number: ES-B.I. PHARMACEUTICALS,INC./RIDGEFIELD-2013-ES-00281ES

PATIENT
  Age: 79 Year
  Sex: Male

DRUGS (1)
  1. PRADAXA [Suspect]
     Indication: ATRIAL FIBRILLATION

REACTIONS (3)
  - Embolism venous [Recovered/Resolved]
  - Pulmonary infarction [Recovered/Resolved]
  - Chronic obstructive pulmonary disease [Recovered/Resolved]
